FAERS Safety Report 13877025 (Version 2)
Quarter: 2017Q3

REPORT INFORMATION
  Report Type: Spontaneous
  Country: US (occurrence: US)
  Receive Date: 20170817
  Receipt Date: 20170825
  Transmission Date: 20171127
  Serious: Yes (Hospitalization, Other)
  Sender: FDA-Public Use
  Company Number: US-LUNDBECK-DKLU2035749

PATIENT
  Age: 3 Year
  Sex: Female

DRUGS (4)
  1. SABRIL [Suspect]
     Active Substance: VIGABATRIN
     Route: 048
     Dates: start: 20161004
  2. SABRIL [Suspect]
     Active Substance: VIGABATRIN
     Route: 048
     Dates: start: 20161005
  3. SABRIL [Suspect]
     Active Substance: VIGABATRIN
     Indication: MALAISE
     Route: 048
     Dates: start: 20161004
  4. SABRIL [Suspect]
     Active Substance: VIGABATRIN
     Route: 048
     Dates: start: 20161005

REACTIONS (4)
  - Respiratory distress [Unknown]
  - Pyrexia [Unknown]
  - Product preparation error [Unknown]
  - Seizure [Unknown]

NARRATIVE: CASE EVENT DATE: 201708
